FAERS Safety Report 19454526 (Version 6)
Quarter: 2023Q2

REPORT INFORMATION
  Report Type: Report from Study
  Country: US (occurrence: US)
  Receive Date: 20210623
  Receipt Date: 20230516
  Transmission Date: 20230722
  Serious: Yes (Death, Hospitalization, Other)
  Sender: FDA-Public Use
  Company Number: US-TAKEDA-US201849064

PATIENT
  Age: 59 Year
  Sex: Female
  Weight: 98 kg

DRUGS (21)
  1. TEDUGLUTIDE [Suspect]
     Active Substance: TEDUGLUTIDE
     Indication: Short-bowel syndrome
     Dosage: 5.1 MILLIGRAM, QD
     Route: 042
     Dates: start: 20140424, end: 20141121
  2. TEDUGLUTIDE [Suspect]
     Active Substance: TEDUGLUTIDE
     Indication: Short-bowel syndrome
     Dosage: 5.1 MILLIGRAM, QD
     Route: 042
     Dates: start: 20140424, end: 20141121
  3. TEDUGLUTIDE [Suspect]
     Active Substance: TEDUGLUTIDE
     Indication: Short-bowel syndrome
     Dosage: 5.1 MILLIGRAM, QD
     Route: 042
     Dates: start: 20140424, end: 20141121
  4. TEDUGLUTIDE [Suspect]
     Active Substance: TEDUGLUTIDE
     Indication: Short-bowel syndrome
     Dosage: 5.1 MILLIGRAM, QD
     Route: 042
     Dates: start: 20140424, end: 20141121
  5. TEDUGLUTIDE [Suspect]
     Active Substance: TEDUGLUTIDE
     Dosage: 5 MILLIGRAM, QD
     Route: 042
     Dates: start: 20150609, end: 20151110
  6. TEDUGLUTIDE [Suspect]
     Active Substance: TEDUGLUTIDE
     Dosage: 5 MILLIGRAM, QD
     Route: 042
     Dates: start: 20150609, end: 20151110
  7. TEDUGLUTIDE [Suspect]
     Active Substance: TEDUGLUTIDE
     Dosage: 5 MILLIGRAM, QD
     Route: 042
     Dates: start: 20150609, end: 20151110
  8. TEDUGLUTIDE [Suspect]
     Active Substance: TEDUGLUTIDE
     Dosage: 5 MILLIGRAM, QD
     Route: 042
     Dates: start: 20150609, end: 20151110
  9. VORICONAZOLE [Concomitant]
     Active Substance: VORICONAZOLE
     Indication: Fungaemia
     Dosage: UNK
     Route: 065
  10. VANCOMYCIN [Concomitant]
     Active Substance: VANCOMYCIN
     Indication: Sepsis
     Dosage: UNK
     Route: 065
  11. TRIAMCINOLONE ACETONIDE [Concomitant]
     Active Substance: TRIAMCINOLONE ACETONIDE
     Indication: Rash
     Dosage: UNK
     Route: 065
  12. TRAZODONE [Concomitant]
     Active Substance: TRAZODONE HYDROCHLORIDE
     Indication: Insomnia
     Dosage: UNK
     Route: 065
  13. AZITHROMYCIN [Concomitant]
     Active Substance: AZITHROMYCIN
     Indication: Sepsis
     Dosage: UNK
     Route: 065
  14. MEROPENEM [Concomitant]
     Active Substance: MEROPENEM
     Indication: Sepsis
     Dosage: UNK
     Route: 065
  15. DAPTOMYCIN [Concomitant]
     Active Substance: DAPTOMYCIN
     Indication: Sepsis
     Dosage: UNK
     Route: 065
  16. DICLOFENAC [Concomitant]
     Active Substance: DICLOFENAC
     Indication: Arthralgia
     Dosage: UNK
     Route: 065
  17. LORAZEPAM [Concomitant]
     Active Substance: LORAZEPAM
     Indication: Anxiety
     Dosage: 1 MILLIGRAM, Q6HR
     Route: 042
     Dates: start: 20201101, end: 20201103
  18. LORAZEPAM [Concomitant]
     Active Substance: LORAZEPAM
     Indication: Agitation
  19. HYDROMORPHONE HCL [Concomitant]
     Active Substance: HYDROMORPHONE HYDROCHLORIDE
     Indication: Pain
     Dosage: 0.50 MILLIGRAM
     Route: 042
     Dates: start: 20201031, end: 20201103
  20. HALOPERIDOL LACTATE [Concomitant]
     Active Substance: HALOPERIDOL LACTATE
     Indication: Agitation
     Dosage: 2 MILLIGRAM, Q6HR
     Route: 042
     Dates: start: 20201029, end: 20201030
  21. DIPHENHYDRAMINE HYDROCHLORIDE [Concomitant]
     Active Substance: DIPHENHYDRAMINE HYDROCHLORIDE
     Indication: Antibiotic prophylaxis
     Dosage: 25 MILLIGRAM, QD
     Route: 048
     Dates: start: 20201028, end: 20201028

REACTIONS (4)
  - End stage renal disease [Fatal]
  - Device related sepsis [Recovered/Resolved]
  - Cellulitis [Recovered/Resolved]
  - Fungaemia [Recovered/Resolved]

NARRATIVE: CASE EVENT DATE: 20180530
